FAERS Safety Report 24551798 (Version 1)
Quarter: 2024Q4

REPORT INFORMATION
  Report Type: Spontaneous
  Country: GB (occurrence: GB)
  Receive Date: 20241026
  Receipt Date: 20241026
  Transmission Date: 20250115
  Serious: Yes (Other)
  Sender: ACCORD
  Company Number: None

PATIENT
  Age: 66 Year
  Sex: Male
  Weight: 84 kg

DRUGS (19)
  1. APIXABAN [Suspect]
     Active Substance: APIXABAN
     Indication: Ill-defined disorder
     Dates: start: 20240822
  2. CLOBETASOL [Concomitant]
     Active Substance: CLOBETASOL
     Indication: Ill-defined disorder
     Dosage: APPLY THINLY ONCE OR TWICE A DAY
     Dates: start: 20240729, end: 20240826
  3. AMITRIPTYLINE HYDROCHLORIDE [Concomitant]
     Active Substance: AMITRIPTYLINE HYDROCHLORIDE
     Indication: Ill-defined disorder
     Dosage: ONE  TO BE TAKEN AT NIGHT WHEN REQUIRED
     Dates: start: 20221219
  4. BISOPROLOL [Concomitant]
     Active Substance: BISOPROLOL\BISOPROLOL FUMARATE
     Indication: Ill-defined disorder
     Dosage: ONE TO BE TAKEN EACH DAY
     Dates: start: 20221219
  5. CLOPIDOGREL [Concomitant]
     Active Substance: CLOPIDOGREL BISULFATE
     Indication: Ill-defined disorder
     Dosage: ONE TO BE TAKEN DAILY
     Dates: start: 20221219
  6. IBUPROFEN [Concomitant]
     Active Substance: IBUPROFEN
     Indication: Ill-defined disorder
     Dosage: APPLY UP TO FOUR TIMES A DAY
     Dates: start: 20221219
  7. TRAMADOL [Concomitant]
     Active Substance: TRAMADOL
     Indication: Ill-defined disorder
     Dosage: ONE TO BE TAKEN TWICE A DAY
     Dates: start: 20221219
  8. MOVICOL [Concomitant]
     Active Substance: POLYETHYLENE GLYCOL 3350\POTASSIUM CHLORIDE\SODIUM BICARBONATE\SODIUM CHLORIDE
     Indication: Ill-defined disorder
     Dosage: AS DIRECTED
     Dates: start: 20221219
  9. ACETAMINOPHEN [Concomitant]
     Active Substance: ACETAMINOPHEN
     Indication: Ill-defined disorder
     Dosage: ONE OR TWO TO BE TAKEN WHEN REQUIRED UP TO FOUR...
     Dates: start: 20221219
  10. PREDNISOLONE [Concomitant]
     Active Substance: PREDNISOLONE
     Indication: Ill-defined disorder
     Dosage: SIX TO BE TAKEN EACH DAY FOR SEVEN DAYS (RESCUE...
     Dates: start: 20221219
  11. PREGABALIN [Concomitant]
     Active Substance: PREGABALIN
     Indication: Ill-defined disorder
     Dosage: ONE TO BE TAKEN TWICE A DAY
     Dates: start: 20221219
  12. ALBUTEROL [Concomitant]
     Active Substance: ALBUTEROL
     Indication: Ill-defined disorder
     Dosage: TWO PUFFS TO BE INHALED FOUR TIMES A DAY WHEN R...
     Dates: start: 20221219
  13. FAMOTIDINE [Concomitant]
     Active Substance: FAMOTIDINE
     Indication: Ill-defined disorder
     Dosage: TAKE ONE TABLET TWICE DAILY
     Dates: start: 20230720
  14. DOXYCYCLINE [Concomitant]
     Active Substance: DOXYCYCLINE
     Indication: Ill-defined disorder
     Dosage: TWO NOW THEN ONE DAILY
     Dates: start: 20240212
  15. EZETIMIBE [Concomitant]
     Active Substance: EZETIMIBE
     Indication: Ill-defined disorder
     Dosage: TAKE ONE DAILY
     Dates: start: 20240325
  16. RIVAROXABAN [Concomitant]
     Active Substance: RIVAROXABAN
     Indication: Ill-defined disorder
     Dosage: TAKE ONE TABLET ONCE DAILY TO THIN THE BLOOD
     Dates: start: 20240325, end: 20240822
  17. MEBEVERINE HYDROCHLORIDE [Concomitant]
     Active Substance: MEBEVERINE HYDROCHLORIDE
     Indication: Ill-defined disorder
     Dosage: TAKE ONE 3 TIMES/DAY
     Dates: start: 20240716
  18. ZOPICLONE [Concomitant]
     Active Substance: ZOPICLONE
     Indication: Ill-defined disorder
     Dosage: TAKE ONE AT NIGHT
     Dates: start: 20240716
  19. EDOXABAN [Concomitant]
     Active Substance: EDOXABAN
     Indication: Ill-defined disorder
     Dosage: TAKE ONE EACH DAY

REACTIONS (3)
  - Paraesthesia [Unknown]
  - Peripheral swelling [Unknown]
  - Joint swelling [Recovering/Resolving]
